FAERS Safety Report 10402690 (Version 1)
Quarter: 2014Q3

REPORT INFORMATION
  Report Type: Spontaneous
  Country: US (occurrence: None)
  Receive Date: 20140821
  Receipt Date: 20140821
  Transmission Date: 20150326
  Serious: Yes (Hospitalization, Disabling)
  Sender: FDA-Public Use
  Company Number: None

PATIENT
  Age: 33 Year
  Sex: Male
  Weight: 99.79 kg

DRUGS (2)
  1. CYMBALTA [Suspect]
     Active Substance: DULOXETINE HYDROCHLORIDE
     Indication: ANXIETY
     Dosage: 30 TWICE DAILY TAKEN BY MOUTH
     Route: 048
     Dates: start: 20070426, end: 20140820
  2. CYMBALTA [Suspect]
     Active Substance: DULOXETINE HYDROCHLORIDE
     Indication: DEPRESSION
     Dosage: 30 TWICE DAILY TAKEN BY MOUTH
     Route: 048
     Dates: start: 20070426, end: 20140820

REACTIONS (2)
  - Unevaluable event [None]
  - Impaired driving ability [None]

NARRATIVE: CASE EVENT DATE: 20140310
